FAERS Safety Report 20535519 (Version 1)
Quarter: 2022Q1

REPORT INFORMATION
  Report Type: Spontaneous
  Country: JP (occurrence: JP)
  Receive Date: 20220302
  Receipt Date: 20220302
  Transmission Date: 20220423
  Serious: Yes (Hospitalization)
  Sender: FDA-Public Use
  Company Number: JP-JNJJAKJPN-202122294

PATIENT
  Age: 85 Year
  Sex: Male
  Weight: 84 kg

DRUGS (7)
  1. ZYTIGA [Suspect]
     Active Substance: ABIRATERONE ACETATE
     Indication: Product used for unknown indication
     Route: 048
     Dates: start: 20210220, end: 20210317
  2. PREDNISOLONE [Concomitant]
     Active Substance: PREDNISOLONE
     Dosage: DOSE UNKNOWN
     Route: 065
     Dates: start: 20210220
  3. LEUPROLIDE ACETATE [Concomitant]
     Active Substance: LEUPROLIDE ACETATE
     Dosage: DOSE UNKNOWN
     Route: 058
     Dates: start: 20210220, end: 20210317
  4. POLAPREZINC [Concomitant]
     Active Substance: POLAPREZINC
     Route: 048
  5. FEBUXOSTAT [Concomitant]
     Active Substance: FEBUXOSTAT
     Route: 048
  6. SENNOSIDES [Concomitant]
     Active Substance: SENNOSIDES
  7. HERBALS [Concomitant]
     Active Substance: HERBALS
     Route: 048

REACTIONS (1)
  - Cholecystitis acute [Not Recovered/Not Resolved]

NARRATIVE: CASE EVENT DATE: 20210316
